FAERS Safety Report 20513838 (Version 2)
Quarter: 2023Q1

REPORT INFORMATION
  Report Type: Spontaneous
  Country: US (occurrence: US)
  Receive Date: 20220224
  Receipt Date: 20230307
  Transmission Date: 20230418
  Serious: No
  Sender: FDA-Public Use
  Company Number: US-AMNEAL PHARMACEUTICALS-2021-AMRX-03394

PATIENT
  Sex: Female

DRUGS (7)
  1. RYTARY [Suspect]
     Active Substance: CARBIDOPA\LEVODOPA
     Indication: Parkinson^s disease
     Dosage: 3 CAPSULES, 6 /DAY (EVERY 4 HOURS)
     Route: 048
  2. INBRIJA [Concomitant]
     Active Substance: LEVODOPA
     Indication: Parkinson^s disease
     Dosage: UNK
     Route: 065
  3. PRAMIPEXOLE [Concomitant]
     Active Substance: PRAMIPEXOLE
     Indication: Product used for unknown indication
     Dosage: UNK
     Route: 065
  4. AMANTADINE [Concomitant]
     Active Substance: AMANTADINE
     Indication: Product used for unknown indication
     Dosage: UNK, 2 /DAY
     Route: 065
  5. CORTISONE [Concomitant]
     Active Substance: CORTISONE
     Indication: Rotator cuff syndrome
     Dosage: SHOT
     Route: 065
     Dates: start: 20220125
  6. CORTISONE [Concomitant]
     Active Substance: CORTISONE
     Indication: Lower limb fracture
     Dosage: SHOT
     Route: 065
     Dates: start: 20220218
  7. CORTISONE [Concomitant]
     Active Substance: CORTISONE
     Indication: Arthralgia

REACTIONS (3)
  - Therapeutic response shortened [Recovered/Resolved]
  - Gait disturbance [Unknown]
  - Hyperhidrosis [Recovered/Resolved]
